FAERS Safety Report 13384818 (Version 5)
Quarter: 2017Q3

REPORT INFORMATION
  Report Type: Spontaneous
  Country: US (occurrence: US)
  Receive Date: 20170329
  Receipt Date: 20170911
  Transmission Date: 20171127
  Serious: Yes (Hospitalization)
  Sender: FDA-Public Use
  Company Number: US-ACTELION-A-US2017-151441

PATIENT
  Age: 81 Year
  Sex: Female

DRUGS (28)
  1. TRACLEER [Suspect]
     Active Substance: BOSENTAN
     Dosage: 62.5 MG, BID
     Route: 048
     Dates: start: 20170214
  2. POLYETHYLENE GLYCOL [Concomitant]
     Active Substance: POLYETHYLENE GLYCOLS
  3. TRACLEER [Suspect]
     Active Substance: BOSENTAN
     Indication: PULMONARY ARTERIAL HYPERTENSION
     Dosage: 125 MG, UNK
     Route: 048
     Dates: start: 20170119
  4. LEVOFLOXACIN. [Concomitant]
     Active Substance: LEVOFLOXACIN
  5. PROAIR HFA [Concomitant]
     Active Substance: ALBUTEROL SULFATE
  6. WARFARIN [Concomitant]
     Active Substance: WARFARIN
  7. CHLORIDE [Concomitant]
     Active Substance: CHLORIDE ION
  8. LANSOPRAZOLE. [Concomitant]
     Active Substance: LANSOPRAZOLE
  9. METHYLPREDNISOLONE. [Concomitant]
     Active Substance: METHYLPREDNISOLONE
  10. ADEMPAS [Concomitant]
     Active Substance: RIOCIGUAT
  11. PREDNISONE. [Concomitant]
     Active Substance: PREDNISONE
  12. OMEGA 3 ACID ETHYL ESTERS [Concomitant]
     Active Substance: OMEGA-3-ACID ETHYL ESTERS
  13. TRIAMCINOLONE ACETONIDE. [Concomitant]
     Active Substance: TRIAMCINOLONE ACETONIDE
  14. DIAZEPAM. [Concomitant]
     Active Substance: DIAZEPAM
  15. GABAPENTIN. [Concomitant]
     Active Substance: GABAPENTIN
  16. PATADAY [Concomitant]
     Active Substance: OLOPATADINE HYDROCHLORIDE
  17. LINZESS [Concomitant]
     Active Substance: LINACLOTIDE
  18. METFORMIN [Concomitant]
     Active Substance: METFORMIN HYDROCHLORIDE
  19. HYDROCODONE/ACETAMINOPHEN [Concomitant]
     Active Substance: ACETAMINOPHEN\HYDROCODONE
  20. OXYBUTYNIN [Concomitant]
     Active Substance: OXYBUTYNIN
  21. CEFDINIR. [Concomitant]
     Active Substance: CEFDINIR
  22. FLUTICASONE PROPIONATE. [Concomitant]
     Active Substance: FLUTICASONE PROPIONATE
  23. METOPROLOL. [Concomitant]
     Active Substance: METOPROLOL
  24. FUROSEMIDE. [Concomitant]
     Active Substance: FUROSEMIDE
     Dosage: 40 MG, TID
     Dates: start: 20141013
  25. DULERA [Concomitant]
     Active Substance: FORMOTEROL FUMARATE DIHYDRATE\MOMETASONE FUROATE
  26. ENALAPRIL [Concomitant]
     Active Substance: ENALAPRIL
  27. NASONEX [Concomitant]
     Active Substance: MOMETASONE FUROATE
  28. SYNTHROID [Concomitant]
     Active Substance: LEVOTHYROXINE SODIUM

REACTIONS (5)
  - Cardiac failure congestive [Recovering/Resolving]
  - Condition aggravated [Recovered/Resolved]
  - Fluid retention [Recovering/Resolving]
  - Right ventricular failure [Recovered/Resolved]
  - Peripheral swelling [Recovered/Resolved]

NARRATIVE: CASE EVENT DATE: 20170507
